FAERS Safety Report 13304964 (Version 1)
Quarter: 2017Q1

REPORT INFORMATION
  Report Type: Spontaneous
  Country: US (occurrence: US)
  Receive Date: 20170308
  Receipt Date: 20170308
  Transmission Date: 20170428
  Serious: No
  Sender: FDA-Public Use
  Company Number: US-PFIZER INC-2017096070

PATIENT
  Age: 8 Month

DRUGS (1)
  1. RAPAMUNE [Suspect]
     Active Substance: SIROLIMUS
     Dosage: 0.3 ML, UNK

REACTIONS (2)
  - Drug level below therapeutic [Unknown]
  - Product preparation error [Unknown]
